FAERS Safety Report 8789698 (Version 2)
Quarter: 2012Q4

REPORT INFORMATION
  Report Type: 
  Country: FR (occurrence: None)
  Receive Date: 20120906
  Receipt Date: 20120919
  Transmission Date: 20130627
  Serious: Yes (Hospitalization)
  Sender: FDA-Public Use
  Company Number: 2012080153

PATIENT
  Age: 19 Year
  Sex: Male

DRUGS (3)
  1. ROWASA [Suspect]
     Indication: PROCTOCOLITIS
     Dosage: (2 gm)
     Route: 048
     Dates: start: 20120723
  2. IMUREL [Suspect]
     Indication: PROCTOCOLITIS
     Route: 048
     Dates: start: 20120713, end: 20120724
  3. SOLUPRED (PREDNISOLONE) [Concomitant]

REACTIONS (6)
  - Pancreatitis acute [None]
  - Proctocolitis [None]
  - Rectal haemorrhage [None]
  - Decreased appetite [None]
  - Colitis [None]
  - Condition aggravated [None]
